FAERS Safety Report 24455994 (Version 2)
Quarter: 2024Q4

REPORT INFORMATION
  Report Type: Spontaneous
  Country: CN (occurrence: CN)
  Receive Date: 20241017
  Receipt Date: 20241018
  Transmission Date: 20250115
  Serious: No
  Sender: ROCHE
  Company Number: CN-ROCHE-3509922

PATIENT
  Age: 74 Year
  Sex: Female

DRUGS (15)
  1. RITUXIMAB [Suspect]
     Active Substance: RITUXIMAB
     Indication: Glomerulonephritis membranous
     Dosage: CUMULATIVE 400 MG, 4 TIME
     Route: 041
  2. RITUXIMAB [Suspect]
     Active Substance: RITUXIMAB
     Dosage: (CUMULATIVE TOTAL OF 1800 MG), AND A TOTAL OF 2200 MG OF RTX (400 MG + 1800 MG).
     Route: 041
     Dates: start: 20210308
  3. RITUXIMAB [Suspect]
     Active Substance: RITUXIMAB
     Dosage: (CUMULATIVE TOTAL OF 1800 MG), AND A TOTAL OF 2200 MG OF RTX (400 MG + 1800 MG).
     Route: 041
     Dates: start: 20210408
  4. RITUXIMAB [Suspect]
     Active Substance: RITUXIMAB
     Dosage: (CUMULATIVE TOTAL OF 1800 MG), AND A TOTAL OF 2200 MG OF RTX (400 MG + 1800 MG).
     Route: 041
     Dates: start: 20210508
  5. RITUXIMAB [Suspect]
     Active Substance: RITUXIMAB
     Dosage: (CUMULATIVE TOTAL OF 1800 MG), AND A TOTAL OF 2200 MG OF RTX (400 MG + 1800 MG).
     Route: 041
     Dates: start: 20210608
  6. RITUXIMAB [Suspect]
     Active Substance: RITUXIMAB
     Dosage: (CUMULATIVE TOTAL OF 1800 MG), AND A TOTAL OF 2200 MG OF RTX (400 MG + 1800 MG).
     Route: 041
     Dates: start: 20210708
  7. RITUXIMAB [Suspect]
     Active Substance: RITUXIMAB
     Dosage: (CUMULATIVE TOTAL OF 1800 MG), AND A TOTAL OF 2200 MG OF RTX (400 MG + 1800 MG).
     Route: 041
     Dates: start: 20210731
  8. OLMESARTAN [Concomitant]
     Active Substance: OLMESARTAN
  9. MEDROL [Concomitant]
     Active Substance: METHYLPREDNISOLONE
     Dosage: FREQUENCY TEXT:EVERYDAY
  10. CYCLOSPORINE [Concomitant]
     Active Substance: CYCLOSPORINE
     Dosage: 50 MG MORNING AND 50 MG EVENING ORALLY
     Route: 048
  11. CYCLOSPORINE [Concomitant]
     Active Substance: CYCLOSPORINE
     Dosage: LATER ADJUSTED TO 100 MG MORNING AND 50 MG EVENING
     Route: 048
  12. CYCLOSPORINE [Concomitant]
     Active Substance: CYCLOSPORINE
  13. CYCLOSPORINE [Concomitant]
     Active Substance: CYCLOSPORINE
     Dosage: 2 TABLETS
  14. TRETINOIN [Concomitant]
     Active Substance: TRETINOIN
  15. CYCLOPHOSPHAMIDE [Concomitant]
     Active Substance: CYCLOPHOSPHAMIDE
     Dosage: CUMULATIVE 1.8 G

REACTIONS (1)
  - Infusion related reaction [Unknown]
